FAERS Safety Report 13767643 (Version 2)
Quarter: 2017Q3

REPORT INFORMATION
  Report Type: Report from Study
  Country: US (occurrence: US)
  Receive Date: 20170719
  Receipt Date: 20170808
  Transmission Date: 20171127
  Serious: Yes (Other)
  Sender: FDA-Public Use
  Company Number: PHEH2017US021518

PATIENT
  Age: 23 Year
  Sex: Female

DRUGS (4)
  1. MEDROXYPROGESTERONE [Concomitant]
     Active Substance: MEDROXYPROGESTERONE
     Indication: PRODUCT USED FOR UNKNOWN INDICATION
     Dosage: 150 MG, QD FOR 90 DAYS
     Route: 030
  2. MONTELUKAST [Concomitant]
     Active Substance: MONTELUKAST SODIUM
     Indication: PRODUCT USED FOR UNKNOWN INDICATION
     Dosage: 10 MG, UNK
     Route: 065
  3. RISPERIDONE. [Concomitant]
     Active Substance: RISPERIDONE
     Indication: PRODUCT USED FOR UNKNOWN INDICATION
     Dosage: 4 G, BID
     Route: 048
  4. AFINITOR [Suspect]
     Active Substance: EVEROLIMUS
     Indication: ANGIOMYOLIPOMA
     Dosage: 10 MG, QD
     Route: 048
     Dates: start: 20170407

REACTIONS (6)
  - Cellulitis [Recovering/Resolving]
  - Wound [Unknown]
  - Abscess limb [Unknown]
  - Seasonal allergy [Unknown]
  - Seizure [Recovering/Resolving]
  - Stubbornness [Unknown]

NARRATIVE: CASE EVENT DATE: 20170701
